FAERS Safety Report 9867038 (Version 2)
Quarter: 2014Q1

REPORT INFORMATION
  Report Type: Spontaneous
  Country: US (occurrence: US)
  Receive Date: 20140204
  Receipt Date: 20140204
  Transmission Date: 20141002
  Serious: No
  Sender: FDA-Public Use
  Company Number: US-JNJFOC-20100304683

PATIENT
  Age: 57 Year
  Sex: Male
  Weight: 83.92 kg

DRUGS (14)
  1. SANDOZ FENTANYL TRANSDERMAL SYSTEM [Suspect]
     Indication: BACK PAIN
     Dosage: 100 UG/HRR + 25 UG/HR
     Route: 062
     Dates: start: 2005
  2. SANDOZ FENTANYL TRANSDERMAL SYSTEM [Suspect]
     Indication: BACK PAIN
     Route: 062
     Dates: start: 2008, end: 2009
  3. SANDOZ FENTANYL TRANSDERMAL SYSTEM [Suspect]
     Indication: NECK PAIN
     Dosage: 100 UG/HRR + 25 UG/HR
     Route: 062
     Dates: start: 2005
  4. SANDOZ FENTANYL TRANSDERMAL SYSTEM [Suspect]
     Indication: NECK PAIN
     Route: 062
     Dates: start: 2008, end: 2009
  5. SANDOZ FENTANYL TRANSDERMAL SYSTEM [Suspect]
     Indication: BACK PAIN
     Route: 062
     Dates: start: 20100312
  6. SANDOZ FENTANYL TRANSDERMAL SYSTEM [Suspect]
     Indication: NECK PAIN
     Route: 062
     Dates: start: 20100312
  7. HYDROCODONE [Concomitant]
     Indication: BREAKTHROUGH PAIN
     Dosage: DOSE: 10/325 MG
     Route: 048
     Dates: start: 2006
  8. DITROPAN [Concomitant]
     Indication: BLADDER DISORDER
     Route: 048
  9. NORFLEX (ORPHENADRINE CITRATE) [Concomitant]
     Indication: MUSCLE SPASMS
     Route: 048
  10. NORFLEX (ORPHENADRINE CITRATE) [Concomitant]
     Indication: MUSCLE SPASMS
     Route: 030
  11. LYRICA [Concomitant]
     Route: 048
     Dates: start: 2008
  12. UNKNOWN MEDICATION [Concomitant]
     Indication: MIGRAINE
     Route: 048
  13. TRICOR [Concomitant]
     Indication: BLOOD CHOLESTEROL INCREASED
     Route: 048
  14. SIMVASTATIN [Concomitant]
     Indication: BLOOD CHOLESTEROL INCREASED
     Route: 048

REACTIONS (5)
  - Nervousness [Recovered/Resolved]
  - Drug effect decreased [Not Recovered/Not Resolved]
  - Product quality issue [Not Recovered/Not Resolved]
  - Product quality issue [Unknown]
  - Wrong technique in drug usage process [Unknown]
